FAERS Safety Report 23381332 (Version 1)
Quarter: 2024Q1

REPORT INFORMATION
  Report Type: Spontaneous
  Country: US (occurrence: US)
  Receive Date: 20240109
  Receipt Date: 20240109
  Transmission Date: 20240410
  Serious: No
  Sender: FDA-Public Use
  Company Number: US-MSNLABS-2024MSNSPO00022

PATIENT

DRUGS (4)
  1. PREGABALIN [Suspect]
     Active Substance: PREGABALIN
     Indication: Neuralgia
     Dosage: 01 CAPSULES PER DAY FOR 03 DAYS (75 MG TOTAL DOSE)
     Route: 048
     Dates: start: 20231119, end: 20231122
  2. PREGABALIN [Suspect]
     Active Substance: PREGABALIN
     Indication: Back pain
     Dosage: 02 CAPSULES PER DAY FOR 03 DAYS (150MG TOTAL DOSE)
     Route: 048
     Dates: start: 20231123, end: 20231126
  3. PREGABALIN [Suspect]
     Active Substance: PREGABALIN
     Dosage: 03 CAPSULES PER DAY (225MG TOTAL DOSE)
     Route: 048
     Dates: start: 20231127
  4. PREGABALIN [Suspect]
     Active Substance: PREGABALIN
     Dosage: 04 CAPSULES PER DAY (02 CAPSULES TWICE A DAY)
     Route: 048
     Dates: end: 20231231

REACTIONS (3)
  - Arthralgia [Unknown]
  - Myalgia [Unknown]
  - Asthenia [Unknown]

NARRATIVE: CASE EVENT DATE: 20231230
